FAERS Safety Report 25477178 (Version 1)
Quarter: 2025Q2

REPORT INFORMATION
  Report Type: Spontaneous
  Country: ES (occurrence: ES)
  Receive Date: 20250625
  Receipt Date: 20250625
  Transmission Date: 20250717
  Serious: Yes (Hospitalization, Other)
  Sender: AUROBINDO
  Company Number: ES-AEMPS-1690985

PATIENT
  Age: 79 Year
  Sex: Male
  Weight: 70 kg

DRUGS (3)
  1. BISOPROLOL [Interacting]
     Active Substance: BISOPROLOL
     Indication: Hypertension
     Route: 048
     Dates: start: 2023
  2. FUROSEMIDE [Interacting]
     Active Substance: FUROSEMIDE
     Indication: Hypertension
     Route: 048
     Dates: start: 2023
  3. MORPHINE SULFATE [Interacting]
     Active Substance: MORPHINE SULFATE
     Indication: Pain
     Dosage: 10 MILLIGRAM, TWO TIMES A DAY
     Route: 048
     Dates: start: 20250218

REACTIONS (1)
  - Acute myocardial infarction [Recovered/Resolved]

NARRATIVE: CASE EVENT DATE: 20250218
